FAERS Safety Report 19576858 (Version 1)
Quarter: 2021Q3

REPORT INFORMATION
  Report Type: Spontaneous
  Country: DK (occurrence: DK)
  Receive Date: 20210719
  Receipt Date: 20210719
  Transmission Date: 20211014
  Serious: Yes (Hospitalization, Disabling)
  Sender: FDA-Public Use
  Company Number: DK-ACCORD-231537

PATIENT
  Age: 46 Year
  Sex: Male

DRUGS (3)
  1. ETOPOSIDE ACCORD [Suspect]
     Active Substance: ETOPOSIDE
     Indication: TESTICULAR CANCER METASTATIC
     Dosage: DOSAGE: UNKNOWN DOSE INTERVAL STRENGTH: 20 MG/ML
     Route: 042
     Dates: start: 20210111, end: 20210228
  2. CISPLATIN PFIZER [Suspect]
     Active Substance: CISPLATIN
     Indication: TESTICULAR CANCER METASTATIC
     Dosage: DOSAGE: UNKNOWN DOSE INTERVAL STRENGTH: 1 MG/ML
     Route: 042
     Dates: start: 20210111, end: 20210228
  3. BLEOMYCIN [Suspect]
     Active Substance: BLEOMYCIN SULFATE
     Indication: TESTICULAR CANCER METASTATIC
     Dosage: DOSAGE: UNKNOWN DOSE INTERVAL STRENGTH: 15000 IU.
     Route: 042
     Dates: start: 20210111, end: 20210228

REACTIONS (3)
  - Pain in extremity [Not Recovered/Not Resolved]
  - Arterial thrombosis [Not Recovered/Not Resolved]
  - Thrombosis [Not Recovered/Not Resolved]

NARRATIVE: CASE EVENT DATE: 20210118
